FAERS Safety Report 5106935-9 (Version None)
Quarter: 2006Q3

REPORT INFORMATION
  Report Type: 
  Country: None (occurrence: None)
  Receive Date: 20060918
  Receipt Date: 20060911
  Transmission Date: 20061208
  Serious: Yes (Hospitalization)
  Sender: FDA-Public Use
  Company Number: US-BOEHRINGER INGELHEIM PHARMACEUTICALS, INC.-2006-BP-10582RO

PATIENT
  Age: 66 Year
  Sex: Female

DRUGS (5)
  1. LITHIUM CARBONATE [Suspect]
     Indication: PAIN
     Route: 048
     Dates: start: 20050101, end: 20060401
  2. EFFEXOR [Concomitant]
     Indication: PAIN
  3. FOSAMAX [Concomitant]
     Indication: OSTEOPOROSIS
  4. EVISTA [Concomitant]
     Indication: OSTEOPOROSIS
  5. TRAZODONE HCL [Concomitant]
     Indication: INSOMNIA

REACTIONS (4)
  - ACCIDENTAL OVERDOSE [None]
  - CHROMATOPSIA [None]
  - DEHYDRATION [None]
  - THERAPEUTIC AGENT TOXICITY [None]
